FAERS Safety Report 8814662 (Version 5)
Quarter: 2013Q4

REPORT INFORMATION
  Report Type: Spontaneous
  Country: US (occurrence: US)
  Receive Date: 20120928
  Receipt Date: 20131210
  Transmission Date: 20140711
  Serious: Yes (Death, Hospitalization, Other)
  Sender: FDA-Public Use
  Company Number: US-009507513-1103USA00965

PATIENT
  Sex: Female

DRUGS (5)
  1. FOSAMAX [Suspect]
     Indication: OSTEOPOROSIS
     Dosage: 70 MG, UNK
     Route: 048
     Dates: start: 20040831, end: 20080909
  2. FOSAMAX [Suspect]
     Dosage: 75 MG, UNK
     Route: 048
     Dates: start: 20040831, end: 20080909
  3. FOSAMAX [Suspect]
     Dosage: 100 MG, UNK
     Route: 048
     Dates: start: 20040831, end: 20080909
  4. FOSAMAX [Suspect]
     Indication: OSTEOPOROSIS
     Dosage: UNK
     Route: 048
     Dates: start: 200802
  5. ALENDRONATE SODIUM [Suspect]
     Indication: OSTEOPOROSIS
     Dosage: UNK
     Dates: start: 20080909, end: 20091214

REACTIONS (29)
  - Tibia fracture [Unknown]
  - Intramedullary rod insertion [Unknown]
  - Death [Fatal]
  - Respiratory failure [Unknown]
  - Dyspnoea [Unknown]
  - Sepsis [Unknown]
  - Pneumonia [Recovering/Resolving]
  - Lung abscess [Recovering/Resolving]
  - Lung neoplasm [Recovering/Resolving]
  - Chronic obstructive pulmonary disease [Unknown]
  - Hypertension [Unknown]
  - Dehydration [Recovered/Resolved]
  - Diabetes mellitus [Unknown]
  - Coronary artery disease [Unknown]
  - Peripheral vascular disorder [Unknown]
  - Coronary angioplasty [Unknown]
  - Hypokalaemia [Recovered/Resolved]
  - Myocardial infarction [Unknown]
  - Hyperglycaemia [Unknown]
  - Adverse drug reaction [Unknown]
  - Pneumonia [Unknown]
  - Chronic obstructive pulmonary disease [Unknown]
  - Compression fracture [Unknown]
  - Coronary artery insufficiency [Unknown]
  - Central venous catheterisation [Unknown]
  - Ankle fracture [Unknown]
  - Dyslipidaemia [Unknown]
  - Asthma [Unknown]
  - Oedema peripheral [Unknown]
